FAERS Safety Report 8155931-6 (Version None)
Quarter: 2012Q1

REPORT INFORMATION
  Report Type: 
  Country: None (occurrence: None)
  Receive Date: 20120103
  Receipt Date: 20111003
  Transmission Date: 20120608
  Serious: No
  Sender: FDA-Public Use
  Company Number: AE-2011-000888

PATIENT
  Age: 54 Year
  Sex: Male
  Weight: 97.5234 kg

DRUGS (6)
  1. PEG INTERFERON (PEGINTERFERON ALFA-2A) [Concomitant]
  2. ZOFRAN [Concomitant]
  3. INCIVEK [Suspect]
     Dosage: 2250MG (750 MG, 3 IN 1 D), ORAL
     Route: 048
     Dates: start: 20110729
  4. WELLBUTRIN [Concomitant]
  5. ISOMETH-APAC (ISOMETHEPTENE) [Concomitant]
  6. RIBAVIRIN [Concomitant]

REACTIONS (3)
  - FEELING ABNORMAL [None]
  - NAUSEA [None]
  - DYSGEUSIA [None]
